FAERS Safety Report 9108399 (Version 2)
Quarter: 2013Q4

REPORT INFORMATION
  Report Type: Spontaneous
  Country: US (occurrence: US)
  Receive Date: 20130222
  Receipt Date: 20131016
  Transmission Date: 20140711
  Serious: Yes (Hospitalization)
  Sender: FDA-Public Use
  Company Number: US-BAYER-2013-021738

PATIENT
  Age: 51 Year
  Sex: Female

DRUGS (8)
  1. GIANVI [Suspect]
     Indication: ACNE
     Dosage: UNK
     Dates: start: 20110122, end: 20120803
  2. YAZ [Suspect]
     Indication: ACNE
  3. YASMIN [Suspect]
     Indication: ACNE
  4. BEYAZ [Suspect]
     Indication: ACNE
  5. OMEGA 3 [Concomitant]
     Dosage: 1 G, UNK
  6. CLOTRIMAZOLE W/BETAMETHASONE DIPROPIONAT [Concomitant]
  7. TRICOR [Concomitant]
     Dosage: 145 MG, UNK
  8. LEVOTHYROXINE [Concomitant]
     Dosage: 0.1 MG, UNK

REACTIONS (7)
  - Pulmonary embolism [None]
  - Injury [None]
  - Pain [None]
  - Fear of disease [None]
  - Emotional distress [None]
  - Anhedonia [None]
  - Pain [None]
